FAERS Safety Report 5451727-4 (Version None)
Quarter: 2007Q3

REPORT INFORMATION
  Report Type: 
  Country: None (occurrence: None)
  Receive Date: 20070913
  Receipt Date: 20070903
  Transmission Date: 20080115
  Serious: Yes (Other)
  Sender: FDA-Public Use
  Company Number: TR-PFIZER INC-2007073212

PATIENT
  Age: 37 Year
  Sex: Female

DRUGS (5)
  1. SERTRALINE [Suspect]
     Indication: BIPOLAR DISORDER
     Dosage: DAILY DOSE:50MG
  2. LITHIUM [Suspect]
     Indication: BIPOLAR DISORDER
     Dosage: DAILY DOSE:900MG
  3. CHLORPROMAZINE [Suspect]
     Indication: BIPOLAR DISORDER
     Dosage: DAILY DOSE:100MG
  4. RISPERIDONE [Suspect]
     Indication: BIPOLAR DISORDER
     Dosage: DAILY DOSE:4MG
  5. VALPROATE SODIUM [Suspect]
     Indication: BIPOLAR DISORDER
     Dosage: DAILY DOSE:1000MG

REACTIONS (1)
  - NEUROLEPTIC MALIGNANT SYNDROME [None]
